FAERS Safety Report 19671086 (Version 1)
Quarter: 2021Q3

REPORT INFORMATION
  Report Type: Spontaneous
  Country: US (occurrence: US)
  Receive Date: 20210806
  Receipt Date: 20210806
  Transmission Date: 20211014
  Serious: Yes (Other)
  Sender: FDA-Public Use
  Company Number: US-ALLERGAN-2127480US

PATIENT
  Sex: Male

DRUGS (2)
  1. OXYCODONE [Suspect]
     Active Substance: OXYCODONE
     Indication: EXPOSURE DURING PREGNANCY
     Route: 064
  2. MORPHINE SULFATE UNK [Suspect]
     Active Substance: MORPHINE SULFATE
     Indication: EXPOSURE DURING PREGNANCY
     Route: 064

REACTIONS (2)
  - Infantile fibromatosis [Recovering/Resolving]
  - Premature baby [Unknown]
